FAERS Safety Report 17106727 (Version 1)
Quarter: 2019Q4

REPORT INFORMATION
  Report Type: Spontaneous
  Country: FR (occurrence: FR)
  Receive Date: 20191203
  Receipt Date: 20191203
  Transmission Date: 20200122
  Serious: Yes (Other)
  Sender: FDA-Public Use
  Company Number: FR-MYLANLABS-2019M1116410

PATIENT
  Age: 83 Year
  Sex: Male
  Weight: 85 kg

DRUGS (1)
  1. CLOZAPINE MYLAN 25 MG, COMPRIM? S?CABLE [Suspect]
     Active Substance: CLOZAPINE
     Indication: HALLUCINATION
     Dosage: 25 MILLIGRAM, QD
     Route: 048
     Dates: start: 20190521, end: 20190522

REACTIONS (3)
  - Somnolence [Recovered/Resolved]
  - Amnesia [Recovered/Resolved]
  - Hallucination [Recovered/Resolved]

NARRATIVE: CASE EVENT DATE: 20190522
